FAERS Safety Report 25269736 (Version 3)
Quarter: 2025Q3

REPORT INFORMATION
  Report Type: Spontaneous
  Country: JP (occurrence: JP)
  Receive Date: 20250505
  Receipt Date: 20250729
  Transmission Date: 20251021
  Serious: Yes (Life-Threatening, Hospitalization, Other)
  Sender: EISAI
  Company Number: JP-Eisai-202501352_LEN-EC_P_1

PATIENT
  Age: 56 Year
  Sex: Female
  Weight: 61 kg

DRUGS (2)
  1. LENVIMA [Suspect]
     Active Substance: LENVATINIB
     Indication: Endometrial cancer
     Dates: start: 20250418
  2. KEYTRUDA [Suspect]
     Active Substance: PEMBROLIZUMAB
     Indication: Endometrial cancer
     Dates: start: 20250418, end: 20250418

REACTIONS (6)
  - Cytokine release syndrome [Recovering/Resolving]
  - Disseminated intravascular coagulation [Unknown]
  - C-reactive protein increased [Unknown]
  - Procalcitonin increased [Unknown]
  - Platelet count decreased [Unknown]
  - Erythema [Unknown]

NARRATIVE: CASE EVENT DATE: 20250430
